FAERS Safety Report 16372664 (Version 1)
Quarter: 2019Q2

REPORT INFORMATION
  Report Type: Spontaneous
  Country: RU (occurrence: RU)
  Receive Date: 20190530
  Receipt Date: 20190530
  Transmission Date: 20190711
  Serious: Yes (Other)
  Sender: FDA-Public Use
  Company Number: RU-ABBVIE-19P-251-2799164-00

PATIENT
  Age: 76 Year
  Sex: Male

DRUGS (7)
  1. VENETOCLAX. [Suspect]
     Active Substance: VENETOCLAX
     Indication: ACUTE MYELOID LEUKAEMIA
     Route: 048
     Dates: start: 20190225, end: 201904
  2. FRAXIPARINE [Concomitant]
     Active Substance: NADROPARIN CALCIUM
     Indication: PRODUCT USED FOR UNKNOWN INDICATION
     Route: 058
     Dates: start: 201905
  3. VENETOCLAX. [Suspect]
     Active Substance: VENETOCLAX
     Route: 048
     Dates: start: 201905
  4. AZACITIDINE. [Concomitant]
     Active Substance: AZACITIDINE
     Route: 058
     Dates: start: 201905, end: 201905
  5. VENETOCLAX. [Suspect]
     Active Substance: VENETOCLAX
     Route: 048
     Dates: start: 201904, end: 20190419
  6. AZACITIDINE. [Concomitant]
     Active Substance: AZACITIDINE
     Indication: ACUTE MYELOID LEUKAEMIA
     Route: 058
     Dates: start: 20190225, end: 201903
  7. AZACITIDINE. [Concomitant]
     Active Substance: AZACITIDINE
     Route: 058
     Dates: start: 20190329, end: 201904

REACTIONS (5)
  - Off label use [Recovered/Resolved]
  - Body temperature increased [Recovered/Resolved]
  - Pulmonary embolism [Recovering/Resolving]
  - Peripheral artery thrombosis [Recovering/Resolving]
  - Mucosal inflammation [Recovered/Resolved]

NARRATIVE: CASE EVENT DATE: 2019
